FAERS Safety Report 8297803-2 (Version None)
Quarter: 2012Q2

REPORT INFORMATION
  Report Type: 
  Country: None (occurrence: None)
  Receive Date: 20120419
  Receipt Date: 20120411
  Transmission Date: 20120825
  Serious: Yes (Hospitalization)
  Sender: FDA-Public Use
  Company Number: JP-ASTELLAS-2012JP002414

PATIENT
  Sex: Female
  Weight: 78.1 kg

DRUGS (13)
  1. MERISLON [Concomitant]
     Indication: DIZZINESS
     Dosage: 6 MG, UID/QD
     Route: 048
  2. DOGMATYL [Concomitant]
     Indication: SCHIZOPHRENIA
     Dosage: 100 MG, TID
     Route: 048
  3. VESICARE [Suspect]
     Indication: HYPERTONIC BLADDER
     Dosage: 5 MG, UID/QD
     Route: 048
     Dates: start: 20120213, end: 20120314
  4. ZETIA [Concomitant]
     Indication: HYPERLIPIDAEMIA
     Dosage: 10 MG, BID
     Route: 048
  5. ICOPENT [Concomitant]
     Indication: HYPERLIPIDAEMIA
     Dosage: 300 MG, BID
     Route: 048
  6. MOTILIUM [Concomitant]
     Dosage: 10 MG, UID/QD
     Route: 048
  7. BEZATATE [Concomitant]
     Indication: HYPERLIPIDAEMIA
     Dosage: 200 MG, BID
     Route: 048
  8. LEXIN [Concomitant]
     Indication: SCHIZOPHRENIA
     Dosage: 200 MG, TID
     Route: 048
  9. ATENOLOL [Concomitant]
     Indication: HYPERTENSION
     Dosage: 2.5 MG, UID/QD
     Route: 048
  10. BICAMOL [Concomitant]
     Indication: SCHIZOPHRENIA
     Dosage: 2 MG, TID
     Route: 048
  11. HALOSTEN [Concomitant]
     Indication: SCHIZOPHRENIA
     Dosage: 2 MG, TID
     Route: 048
  12. SEPAZON [Concomitant]
     Indication: SCHIZOPHRENIA
     Dosage: 4 MG, TID
     Route: 048
  13. MEILAX [Concomitant]
     Indication: SCHIZOPHRENIA
     Dosage: 1 MG, TID
     Route: 048

REACTIONS (1)
  - ORGANISING PNEUMONIA [None]
